FAERS Safety Report 11491626 (Version 2)
Quarter: 2016Q1

REPORT INFORMATION
  Report Type: Report from Study
  Country: CZ (occurrence: CZ)
  Receive Date: 20150910
  Receipt Date: 20160330
  Transmission Date: 20160525
  Serious: Yes (Death, Hospitalization)
  Sender: FDA-Public Use
  Company Number: PHHY2015CZ108629

PATIENT
  Age: 66 Year
  Sex: Male

DRUGS (1)
  1. AFINITOR [Suspect]
     Active Substance: EVEROLIMUS
     Indication: METASTATIC RENAL CELL CARCINOMA
     Dosage: 5 MG
     Route: 065
     Dates: start: 20150109, end: 20150715

REACTIONS (2)
  - Metastatic renal cell carcinoma [Fatal]
  - Metabolic disorder [Unknown]

NARRATIVE: CASE EVENT DATE: 20150715
